FAERS Safety Report 11961042 (Version 2)
Quarter: 2016Q1

REPORT INFORMATION
  Report Type: Report from Study
  Country: US (occurrence: US)
  Receive Date: 20160126
  Receipt Date: 20160202
  Transmission Date: 20160526
  Serious: No
  Sender: FDA-Public Use
  Company Number: US-ABBVIE-15K-163-1358506-00

PATIENT
  Age: 23 Year
  Sex: Male

DRUGS (5)
  1. PREDNISONE. [Suspect]
     Active Substance: PREDNISONE
     Dosage: DECREASING BY 5 MG EVERY WEEK
     Route: 065
     Dates: start: 201502, end: 201502
  2. PREDNISONE. [Suspect]
     Active Substance: PREDNISONE
     Dosage: DECREASING BY 5 MG EVERY WEEK
     Route: 065
     Dates: start: 2015, end: 2015
  3. PREDNISONE. [Suspect]
     Active Substance: PREDNISONE
     Indication: PRODUCT USED FOR UNKNOWN INDICATION
     Dosage: DECREASING BY 5 MG EVERY WEEK
     Route: 065
     Dates: start: 201502, end: 201502
  4. PREDNISONE. [Suspect]
     Active Substance: PREDNISONE
     Dosage: DECREASING BY 5 MG EVERY WEEK
     Route: 065
     Dates: start: 201503
  5. HUMIRA [Suspect]
     Active Substance: ADALIMUMAB
     Indication: CROHN^S DISEASE
     Route: 065
     Dates: start: 20150303, end: 20150303

REACTIONS (2)
  - Injection site pain [Recovered/Resolved]
  - Weight increased [Unknown]

NARRATIVE: CASE EVENT DATE: 20150303
